FAERS Safety Report 7598218-2 (Version None)
Quarter: 2011Q3

REPORT INFORMATION
  Report Type: 
  Country: None (occurrence: None)
  Receive Date: 20110708
  Receipt Date: 20110608
  Transmission Date: 20111222
  Serious: Yes (Hospitalization)
  Sender: FDA-Public Use
  Company Number: FR-PFIZER INC-FR-WYE-G02883409

PATIENT
  Sex: Male

DRUGS (7)
  1. CANCIDAS [Concomitant]
     Dosage: UNK
     Route: 042
     Dates: start: 20081031, end: 20081124
  2. POSACONAZOLE [Concomitant]
     Dosage: UNK
     Route: 042
     Dates: start: 20081103, end: 20081124
  3. VANCOMYCIN [Suspect]
     Dosage: UNKNOWN
     Route: 042
     Dates: start: 20081013, end: 20081027
  4. PIPERACILLIN AND TAZOBACTAM [Suspect]
     Dosage: 4 G, 3X/DAY
     Route: 042
     Dates: start: 20081021, end: 20081113
  5. ZYVOX [Suspect]
     Dosage: 300 MG, 2X/DAY
     Route: 042
     Dates: start: 20081103, end: 20081112
  6. VANCOMYCIN [Suspect]
     Dosage: UNKNOWN
     Route: 042
     Dates: start: 20081116, end: 20081119
  7. AMBISOME [Concomitant]
     Dosage: UNK
     Route: 042
     Dates: start: 20081021, end: 20081124

REACTIONS (3)
  - DRUG RASH WITH EOSINOPHILIA AND SYSTEMIC SYMPTOMS [None]
  - RENAL FAILURE [None]
  - THROMBOCYTOPENIA [None]
